FAERS Safety Report 5075629-0 (Version None)
Quarter: 2006Q3

REPORT INFORMATION
  Report Type: 
  Country: None (occurrence: None)
  Receive Date: 20060807
  Receipt Date: 20060727
  Transmission Date: 20061208
  Serious: Yes (Life-Threatening, Hospitalization)
  Sender: FDA-Public Use
  Company Number: S06-USA-02938-01

PATIENT
  Age: 67 Year
  Sex: Male

DRUGS (12)
  1. LEXAPRO [Suspect]
     Indication: ANXIETY
     Dosage: 30 MG QD PO
     Route: 048
     Dates: start: 20040701, end: 20060101
  2. LEXAPRO [Suspect]
     Indication: ANXIETY
     Dosage: 50 MG QD PO
     Route: 048
     Dates: start: 20060101
  3. LEXAPRO [Suspect]
     Indication: ANXIETY
     Dosage: 20 MG QD PO
     Route: 048
     Dates: start: 20030701, end: 20040701
  4. PILOCARPINE [Concomitant]
  5. LIPITOR [Concomitant]
  6. COLLACE (DOCUSATE SODIUM) [Concomitant]
  7. ASPIRIN [Concomitant]
  8. SODIUM BICARBONATE [Concomitant]
  9. FOLIC ACID [Concomitant]
  10. CALCIUM GLUCONATE [Concomitant]
  11. FERROUS SULFATE TAB [Concomitant]
  12. MULTI-VITAMIN [Concomitant]

REACTIONS (5)
  - BLADDER CANCER [None]
  - CARDIAC MURMUR [None]
  - DRUG INEFFECTIVE [None]
  - MYOCARDIAL INFARCTION [None]
  - POST PROCEDURAL COMPLICATION [None]
